FAERS Safety Report 21367223 (Version 2)
Quarter: 2022Q4

REPORT INFORMATION
  Report Type: Spontaneous
  Country: US (occurrence: US)
  Receive Date: 20220923
  Receipt Date: 20221021
  Transmission Date: 20230113
  Serious: No
  Sender: FDA-Public Use
  Company Number: US-SA-2022SA387633

PATIENT
  Age: 61 Year
  Sex: Male

DRUGS (1)
  1. ELOCTATE [Suspect]
     Active Substance: EFMOROCTOCOG ALFA
     Dosage: 4550 IU

REACTIONS (2)
  - Sinusitis [Unknown]
  - Medical procedure [Unknown]

NARRATIVE: CASE EVENT DATE: 20220827
